FAERS Safety Report 4426844-8 (Version None)
Quarter: 2004Q3

REPORT INFORMATION
  Report Type: 
  Country: None (occurrence: None)
  Receive Date: 20040816
  Receipt Date: 20040810
  Transmission Date: 20050211
  Serious: Yes (Life-Threatening, Hospitalization)
  Sender: FDA-Public Use
  Company Number: PHRM2004FR02546

PATIENT
  Age: 59 Year
  Sex: Female
  Weight: 59 kg

DRUGS (4)
  1. ESIDRIX [Suspect]
     Dosage: 1 DF, QD
     Route: 048
     Dates: end: 20040702
  2. ALDACTONE [Suspect]
     Dosage: 25 MG, QD
     Route: 048
     Dates: end: 20040702
  3. LASIX [Suspect]
     Dosage: 625 MG, DAILY
     Route: 048
     Dates: end: 20040702
  4. TRIATEC [Suspect]
     Dosage: 2.5 MG, QD
     Route: 048
     Dates: end: 20040702

REACTIONS (9)
  - BLOOD CREATININE INCREASED [None]
  - BLOOD UREA INCREASED [None]
  - DEHYDRATION [None]
  - GENERAL PHYSICAL HEALTH DETERIORATION [None]
  - HYPOTENSION [None]
  - PROTEIN TOTAL INCREASED [None]
  - RENAL FAILURE ACUTE [None]
  - RENAL IMPAIRMENT [None]
  - SKIN WRINKLING [None]
